FAERS Safety Report 7241198-X (Version None)
Quarter: 2011Q1

REPORT INFORMATION
  Report Type: 
  Country: None (occurrence: None)
  Receive Date: 20110124
  Receipt Date: 20110113
  Transmission Date: 20110831
  Serious: Yes (Hospitalization)
  Sender: FDA-Public Use
  Company Number: US-ASTRAZENECA-2011SE02290

PATIENT
  Age: 28 Year
  Sex: Female
  Weight: 69.4 kg

DRUGS (4)
  1. VICODIN [Concomitant]
  2. CELEXA [Concomitant]
  3. MULTIVITAMIN [Concomitant]
  4. NEXIUM [Suspect]
     Indication: GASTROOESOPHAGEAL REFLUX DISEASE
     Route: 048
     Dates: start: 20070101

REACTIONS (1)
  - CHOLECYSTECTOMY [None]
